FAERS Safety Report 5358780-7 (Version None)
Quarter: 2007Q2

REPORT INFORMATION
  Report Type: 
  Country: None (occurrence: None)
  Receive Date: 20070615
  Receipt Date: 20070612
  Transmission Date: 20071010
  Serious: Yes (Hospitalization, Other)
  Sender: FDA-Public Use
  Company Number: IT-AVENTIS-200714414GDDC

PATIENT
  Age: 59 Year
  Sex: Female

DRUGS (10)
  1. ARAVA [Suspect]
     Indication: RHEUMATOID ARTHRITIS
     Route: 048
     Dates: start: 20060101
  2. HUMIRA [Suspect]
     Indication: RHEUMATOID ARTHRITIS
     Route: 058
     Dates: start: 20040101
  3. MEDROL [Suspect]
     Route: 048
     Dates: start: 20070426, end: 20070515
  4. LANSOPRAZOLE [Concomitant]
     Route: 048
     Dates: start: 20040101
  5. METACEN [Concomitant]
     Route: 048
     Dates: start: 20040101
  6. DIAMICRON [Concomitant]
     Indication: DIABETES MELLITUS
     Route: 048
     Dates: start: 20020101
  7. GABAPENTIN [Concomitant]
     Route: 048
     Dates: start: 19960101
  8. CARDURA                            /00639301/ [Concomitant]
     Route: 048
  9. NORVASC [Concomitant]
     Route: 048
  10. COTAREG [Concomitant]
     Dosage: DOSE: 1 CPR
     Route: 048

REACTIONS (4)
  - ABSCESS [None]
  - ARTHROPATHY [None]
  - PAIN [None]
  - SWELLING [None]
